FAERS Safety Report 7709805-2 (Version None)
Quarter: 2011Q3

REPORT INFORMATION
  Report Type: 
  Country: None (occurrence: None)
  Receive Date: 20110825
  Receipt Date: 20110810
  Transmission Date: 20111222
  Serious: Yes (Other)
  Sender: FDA-Public Use
  Company Number: IT-JNJFOC-20110603122

PATIENT
  Sex: Male

DRUGS (3)
  1. CETIRIZINE HCL [Suspect]
     Route: 048
  2. CETIRIZINE HCL [Suspect]
     Indication: DERMATITIS
     Route: 048
     Dates: start: 20110421, end: 20110421
  3. LENIRIT [Concomitant]
     Indication: DERMATITIS
     Route: 061
     Dates: start: 20110421, end: 20110421

REACTIONS (3)
  - ASTHENIA [None]
  - DYSPNOEA [None]
  - HYPERHIDROSIS [None]
